FAERS Safety Report 24665992 (Version 1)
Quarter: 2024Q4

REPORT INFORMATION
  Report Type: Spontaneous
  Country: AU (occurrence: AU)
  Receive Date: 20241126
  Receipt Date: 20241126
  Transmission Date: 20250114
  Serious: Yes (Hospitalization)
  Sender: MERCK
  Company Number: AU-009507513-2411AUS008851

PATIENT
  Age: 46 Year
  Sex: Male

DRUGS (3)
  1. KEYTRUDA [Suspect]
     Active Substance: PEMBROLIZUMAB
     Indication: Metastatic malignant melanoma
     Dosage: 200 MILLIGRAM, DOSE FORM: SOLUTION FOR INFUSION; INTERVAL: 1 DAY
     Route: 042
     Dates: start: 20240731
  2. ONVAPEGLEUKIN ALFA [Suspect]
     Active Substance: ONVAPEGLEUKIN ALFA
     Indication: Metastatic malignant melanoma
     Dosage: 40 MICROGRAM PER KILOGRAM, DOSE FORM: SOLUTION FOR INFUSION; INTERVAL: 1 DAY
     Route: 042
     Dates: start: 20240731, end: 20240807
  3. ONVAPEGLEUKIN ALFA [Suspect]
     Active Substance: ONVAPEGLEUKIN ALFA
     Dosage: 80 MICROGRAM PER KILOGRAM, DOSE FORM: SOLUTION FOR INFUSION; INTERVAL: 1 DAY
     Route: 042
     Dates: start: 20240821

REACTIONS (1)
  - Lymphocytosis [Not Recovered/Not Resolved]

NARRATIVE: CASE EVENT DATE: 20240812
